FAERS Safety Report 21216657 (Version 2)
Quarter: 2022Q3

REPORT INFORMATION
  Report Type: Spontaneous
  Country: US (occurrence: US)
  Receive Date: 20220816
  Receipt Date: 20220830
  Transmission Date: 20221027
  Serious: No
  Sender: FDA-Public Use
  Company Number: US-BEH-2022148376

PATIENT
  Age: 75 Year
  Sex: Female
  Weight: 72.562 kg

DRUGS (4)
  1. HIZENTRA [Suspect]
     Active Substance: HUMAN IMMUNOGLOBULIN G
     Indication: Senile osteoporosis
     Dosage: 10 GRAM, QW
     Route: 058
     Dates: start: 20211214
  2. HIZENTRA [Suspect]
     Active Substance: HUMAN IMMUNOGLOBULIN G
     Indication: Immunodeficiency common variable
     Dosage: UNK
     Route: 058
     Dates: start: 20220502
  3. HIZENTRA [Suspect]
     Active Substance: HUMAN IMMUNOGLOBULIN G
     Indication: White blood cell disorder
     Dosage: UNK
     Route: 058
     Dates: start: 20220502
  4. HIZENTRA [Suspect]
     Active Substance: HUMAN IMMUNOGLOBULIN G
     Indication: Selective IgG subclass deficiency

REACTIONS (13)
  - Injection site bruising [Unknown]
  - Injection site vesicles [Unknown]
  - No adverse event [Unknown]
  - Off label use [Unknown]
  - Pain in extremity [Unknown]
  - Sleep disorder [Unknown]
  - Peripheral swelling [Unknown]
  - Muscle spasms [Unknown]
  - Burning sensation [Unknown]
  - Hypoaesthesia [Unknown]
  - Paraesthesia [Unknown]
  - Pain in extremity [Recovered/Resolved]
  - Pain in extremity [Unknown]

NARRATIVE: CASE EVENT DATE: 20220406
